FAERS Safety Report 7478460-1 (Version None)
Quarter: 2011Q2

REPORT INFORMATION
  Report Type: 
  Country: None (occurrence: None)
  Receive Date: 20110513
  Receipt Date: 20100622
  Transmission Date: 20111010
  Serious: No
  Sender: FDA-Public Use
  Company Number: US-PFIZER INC-2010078589

PATIENT
  Age: 65 Year
  Sex: Male
  Weight: 90 kg

DRUGS (2)
  1. CELEBREX [Suspect]
     Indication: ARTHRITIS
     Dosage: 200 MG, 1X/DAY
     Route: 048
     Dates: start: 20100622
  2. FINASTERIDE [Concomitant]
     Indication: PROSTATIC DISORDER
     Dosage: UNK

REACTIONS (3)
  - DYSPEPSIA [None]
  - SENSATION OF FOREIGN BODY [None]
  - ERUCTATION [None]
